FAERS Safety Report 5299349-2 (Version None)
Quarter: 2007Q2

REPORT INFORMATION
  Report Type: 
  Country: None (occurrence: None)
  Receive Date: 20070411
  Receipt Date: 20070411
  Transmission Date: 20071010
  Serious: Yes (Other)
  Sender: FDA-Public Use
  Company Number: None

PATIENT
  Sex: Male
  Weight: 70.7611 kg

DRUGS (1)
  1. TRIAMINIC COLD + ALLERGY SYRUP [Suspect]
     Indication: NASOPHARYNGITIS
     Dosage: 1 TEASPOON 2 TIMES A DAY MOUTH
     Route: 048
     Dates: start: 20070201, end: 20070201

REACTIONS (3)
  - BLADDER DISTENSION [None]
  - POLLAKIURIA [None]
  - RENAL PAIN [None]
